FAERS Safety Report 4983639-4 (Version None)
Quarter: 2006Q2

REPORT INFORMATION
  Report Type: 
  Country: None (occurrence: None)
  Receive Date: 20060425
  Receipt Date: 20060425
  Transmission Date: 20061013
  Serious: Yes (Life-Threatening, Hospitalization)
  Sender: FDA-Public Use
  Company Number: None

PATIENT
  Age: 81 Year
  Sex: Male
  Weight: 69.9 kg

DRUGS (1)
  1. WARFARIN SODIUM [Suspect]

REACTIONS (3)
  - FLANK PAIN [None]
  - HAEMATOMA [None]
  - HAEMORRHAGE [None]
